FAERS Safety Report 25016829 (Version 1)
Quarter: 2025Q1

REPORT INFORMATION
  Report Type: Spontaneous
  Country: US (occurrence: US)
  Receive Date: 20250227
  Receipt Date: 20250227
  Transmission Date: 20250409
  Serious: No
  Sender: UCB
  Company Number: US-UCBSA-2024033591

PATIENT
  Age: 4 Decade
  Sex: Female

DRUGS (12)
  1. LEVETIRACETAM [Suspect]
     Active Substance: LEVETIRACETAM
     Indication: Status epilepticus
  2. LEVETIRACETAM [Suspect]
     Active Substance: LEVETIRACETAM
     Indication: Encephalitis autoimmune
  3. LEVETIRACETAM [Suspect]
     Active Substance: LEVETIRACETAM
     Indication: Off label use
  4. OXYCODONE [Concomitant]
     Active Substance: OXYCODONE
     Indication: Analgesic therapy
  5. OXYCODONE [Concomitant]
     Active Substance: OXYCODONE
     Indication: Pain management
  6. GABAPENTIN [Concomitant]
     Active Substance: GABAPENTIN
     Indication: Pain management
  7. BACLOFEN [Concomitant]
     Active Substance: BACLOFEN
     Indication: Pain management
  8. KETOROLAC [Concomitant]
     Active Substance: KETOROLAC TROMETHAMINE
     Indication: Pain management
  9. CLOBAZAM [Concomitant]
     Active Substance: CLOBAZAM
     Indication: Status epilepticus
  10. CLOBAZAM [Concomitant]
     Active Substance: CLOBAZAM
     Indication: Encephalitis autoimmune
  11. PERAMPANEL [Concomitant]
     Active Substance: PERAMPANEL
     Indication: Status epilepticus
  12. PERAMPANEL [Concomitant]
     Active Substance: PERAMPANEL
     Indication: Encephalitis autoimmune

REACTIONS (1)
  - No adverse event [Unknown]
